FAERS Safety Report 10071050 (Version 3)
Quarter: 2014Q2

REPORT INFORMATION
  Report Type: Report from Study
  Country: DE (occurrence: DE)
  Receive Date: 20140410
  Receipt Date: 20140422
  Transmission Date: 20141212
  Serious: Yes (Hospitalization)
  Sender: FDA-Public Use
  Company Number: DE-JNJFOC-20140319050

PATIENT
  Age: 28 Year
  Sex: Male
  Weight: 67 kg

DRUGS (4)
  1. SIMPONI [Suspect]
     Indication: JUVENILE IDIOPATHIC ARTHRITIS
     Route: 058
     Dates: start: 2010
  2. SIMPONI [Suspect]
     Indication: JUVENILE IDIOPATHIC ARTHRITIS
     Route: 058
     Dates: start: 20121107, end: 20140109
  3. SIMPONI [Suspect]
     Indication: RHEUMATOID ARTHRITIS
     Route: 058
     Dates: start: 2010
  4. SIMPONI [Suspect]
     Indication: RHEUMATOID ARTHRITIS
     Route: 058
     Dates: start: 20121107, end: 20140109

REACTIONS (10)
  - General physical health deterioration [Recovered/Resolved]
  - Arthralgia [Recovered/Resolved]
  - Musculoskeletal stiffness [Recovered/Resolved]
  - Osteoarthritis [Recovered/Resolved]
  - Arthritis [Recovered/Resolved]
  - Erythema multiforme [Recovered/Resolved]
  - Off label use [Unknown]
  - Drug effect decreased [Unknown]
  - Infection [Recovered/Resolved]
  - Cough [Recovered/Resolved]
